FAERS Safety Report 5046150-0 (Version None)
Quarter: 2006Q3

REPORT INFORMATION
  Report Type: 
  Country: None (occurrence: None)
  Receive Date: 20060707
  Receipt Date: 20060707
  Transmission Date: 20061208
  Serious: Yes (Other)
  Sender: FDA-Public Use
  Company Number: None

PATIENT
  Age: 2 Year
  Sex: Female

DRUGS (1)
  1. EX-LAX MAXIMUM STRENGTH -BY PHON     SENNA 25 MG    NOVARTIS [Suspect]
     Indication: ACCIDENTAL DRUG INTAKE BY CHILD
     Dosage: 75 MG MAXIMUM    ONE TIME  PO
     Route: 048
     Dates: start: 20060703, end: 20060703

REACTIONS (4)
  - BLISTER [None]
  - RASH [None]
  - SKIN EXFOLIATION [None]
  - THERMAL BURN [None]
